FAERS Safety Report 8041893-9 (Version None)
Quarter: 2012Q1

REPORT INFORMATION
  Report Type: 
  Country: None (occurrence: None)
  Receive Date: 20120112
  Receipt Date: 20120112
  Transmission Date: 20120608
  Serious: Yes (Other)
  Sender: FDA-Public Use
  Company Number: None

PATIENT
  Age: 62 Year
  Sex: Female
  Weight: 79.378 kg

DRUGS (1)
  1. LEVOFLOXACIN [Suspect]
     Indication: CYSTITIS
     Dosage: 1 TAB
     Route: 048
     Dates: start: 20111201, end: 20111205

REACTIONS (5)
  - TENDON PAIN [None]
  - PAIN IN EXTREMITY [None]
  - MYALGIA [None]
  - ACTIVITIES OF DAILY LIVING IMPAIRED [None]
  - ABASIA [None]
